FAERS Safety Report 10977732 (Version 1)
Quarter: 2015Q1

REPORT INFORMATION
  Report Type: Spontaneous
  Country: ES (occurrence: None)
  Receive Date: 20150330
  Receipt Date: 20150330
  Transmission Date: 20150721
  Serious: Yes (Hospitalization, Other)
  Sender: FDA-Public Use
  Company Number: 2015COV00056

PATIENT
  Age: 36 Year
  Sex: Female

DRUGS (2)
  1. HYDROXYCHLOROQUINE (HYDROXYCHLOROQUINE) [Suspect]
     Active Substance: HYDROXYCHLOROQUINE
     Indication: SYSTEMIC LUPUS ERYTHEMATOSUS
  2. PREDNISONE (PREDNISONE) [Concomitant]
     Active Substance: PREDNISONE

REACTIONS (4)
  - Suicidal ideation [None]
  - Hallucinations, mixed [None]
  - Anxiety [None]
  - Intentional self-injury [None]
